FAERS Safety Report 16041994 (Version 1)
Quarter: 2019Q1

REPORT INFORMATION
  Report Type: Spontaneous
  Country: US (occurrence: US)
  Receive Date: 20190306
  Receipt Date: 20190306
  Transmission Date: 20190418
  Serious: No
  Sender: FDA-Public Use
  Company Number: US-AKORN PHARMACEUTICALS-2018AKN00821

PATIENT
  Sex: Male

DRUGS (3)
  1. DUREZOL [Concomitant]
     Active Substance: DIFLUPREDNATE
     Dosage: UNK, 1X/DAY TO THE LEFT EYE
     Route: 047
  2. TRIAMCINOLONE [Concomitant]
     Active Substance: TRIAMCINOLONE
     Dosage: TO THE LEFT EYE
     Route: 031
  3. MYORISAN [Suspect]
     Active Substance: ISOTRETINOIN
     Indication: RETINOPATHY PROLIFERATIVE
     Dosage: 20 MG, 1X/DAY
     Route: 048
     Dates: start: 20180315, end: 201804

REACTIONS (3)
  - Headache [Recovered/Resolved]
  - Off label use [Recovered/Resolved]
  - Eye pain [Recovered/Resolved]

NARRATIVE: CASE EVENT DATE: 2018
